FAERS Safety Report 9037916 (Version 1)
Quarter: 2013Q1

REPORT INFORMATION
  Report Type: Spontaneous
  Country: US (occurrence: US)
  Receive Date: 20130129
  Receipt Date: 20130129
  Transmission Date: 20140127
  Serious: No
  Sender: FDA-Public Use
  Company Number: US-BRISTOL-MYERS SQUIBB COMPANY-16469868

PATIENT
  Age: 22 Year
  Sex: Male

DRUGS (1)
  1. AZACTAM FOR INJ [Suspect]
     Route: 042

REACTIONS (2)
  - Swelling face [Unknown]
  - Skin exfoliation [Unknown]
